FAERS Safety Report 4360270-5 (Version None)
Quarter: 2004Q2

REPORT INFORMATION
  Report Type: 
  Country: None (occurrence: None)
  Receive Date: 20040519
  Receipt Date: 20040513
  Transmission Date: 20050107
  Serious: Yes (Other)
  Sender: FDA-Public Use
  Company Number: US-JNJFOC-20040503639

PATIENT
  Sex: Female
  Weight: 59.88 kg

DRUGS (8)
  1. ORTHO EVRA [Suspect]
     Dosage: CONTINOUS USE
     Route: 062
     Dates: start: 20040507, end: 20040511
  2. TRILEPTAL [Concomitant]
     Dosage: DAILY
     Dates: start: 20040201
  3. MYCELEX [Concomitant]
     Dates: start: 20040301
  4. PREDNISONE [Concomitant]
     Dosage: DAILY
     Dates: start: 20040301
  5. FERROUS SULFATE TAB [Concomitant]
     Dosage: DAILY
     Dates: start: 20040401
  6. PREVACID [Concomitant]
     Dosage: DAILY
     Dates: start: 20040301
  7. TYLENOL W/ CODEINE NO. 3 [Concomitant]
     Dates: start: 20040301
  8. TYLENOL W/ CODEINE NO. 3 [Concomitant]
     Dosage: DAILY
     Dates: start: 20040301

REACTIONS (1)
  - CONVULSION [None]
